FAERS Safety Report 5533206-9 (Version None)
Quarter: 2007Q4

REPORT INFORMATION
  Report Type: 
  Country: None (occurrence: None)
  Receive Date: 20071130
  Receipt Date: 20071130
  Transmission Date: 20080405
  Serious: Yes (Hospitalization)
  Sender: FDA-Public Use
  Company Number: None

PATIENT
  Sex: Male
  Weight: 63 kg

DRUGS (16)
  1. CYTARABINE [Suspect]
     Dosage: 14640 MG
  2. MITOXANTRONE HCL [Suspect]
     Dosage: 88 MG
  3. BACITRACIN [Concomitant]
  4. GABAPENTIN [Concomitant]
  5. MOXIFLOXACIN HCL [Concomitant]
  6. PROTONIX [Concomitant]
  7. RANITIDINE HCL [Concomitant]
  8. SULFAMETHOXAZOLE [Concomitant]
  9. AMPHOTERICIN B [Concomitant]
  10. FLUCONAZOLE [Concomitant]
  11. FUROSEMIDE [Concomitant]
  12. GENTAMICIN SULFATE [Concomitant]
  13. LANSOPRAZOLE [Concomitant]
  14. METRONIDAZOLE [Concomitant]
  15. VANCOMYCIN [Concomitant]
  16. VORICONAZOLE [Concomitant]

REACTIONS (30)
  - ABASIA [None]
  - ACIDOSIS [None]
  - ANURIA [None]
  - ASTHENIA [None]
  - BACK PAIN [None]
  - BRONCHOPULMONARY ASPERGILLOSIS [None]
  - CHEST X-RAY ABNORMAL [None]
  - CONDITION AGGRAVATED [None]
  - DEPRESSED LEVEL OF CONSCIOUSNESS [None]
  - DIALYSIS [None]
  - EYE PAIN [None]
  - GALLBLADDER DISORDER [None]
  - GASTRIC ULCER [None]
  - GASTRITIS [None]
  - HEADACHE [None]
  - HYPOTENSION [None]
  - KLEBSIELLA INFECTION [None]
  - MALAISE [None]
  - MENINGITIS [None]
  - MENTAL STATUS CHANGES [None]
  - MIGRAINE [None]
  - NAUSEA [None]
  - NEURALGIA [None]
  - ORAL INTAKE REDUCED [None]
  - PAIN [None]
  - PULMONARY MASS [None]
  - PYREXIA [None]
  - REFUSAL OF TREATMENT BY PATIENT [None]
  - SEPSIS [None]
  - VOMITING [None]
